FAERS Safety Report 20025524 (Version 3)
Quarter: 2024Q2

REPORT INFORMATION
  Report Type: Spontaneous
  Country: US (occurrence: US)
  Receive Date: 20211102
  Receipt Date: 20240612
  Transmission Date: 20240715
  Serious: Yes (Other)
  Sender: FDA-Public Use
  Company Number: US-SA-SAC20211026000360

PATIENT
  Age: 29 Year
  Sex: Male
  Weight: 68 kg

DRUGS (10)
  1. DUPIXENT [Suspect]
     Active Substance: DUPILUMAB
     Indication: Asthma
     Dosage: 300 MG, QOW
     Route: 058
     Dates: start: 20200930, end: 20211101
  2. DUPIXENT [Suspect]
     Active Substance: DUPILUMAB
     Dosage: 300 MG, QOW
     Route: 058
     Dates: start: 20230428, end: 20240113
  3. FASENRA [Concomitant]
     Active Substance: BENRALIZUMAB
     Dosage: UNK
     Dates: start: 2020
  4. FASENRA [Concomitant]
     Active Substance: BENRALIZUMAB
     Dosage: UNK
     Dates: start: 20211119, end: 202304
  5. ONDANSETRON HYDROCHLORIDE [Concomitant]
     Active Substance: ONDANSETRON HYDROCHLORIDE
  6. ALBUTEROL SULFATE [Concomitant]
     Active Substance: ALBUTEROL SULFATE
  7. SYMBICORT [Concomitant]
     Active Substance: BUDESONIDE\FORMOTEROL FUMARATE DIHYDRATE
  8. SPIRIVA RESPIMAT [Concomitant]
     Active Substance: TIOTROPIUM BROMIDE
     Route: 055
  9. MODAFINIL [Concomitant]
     Active Substance: MODAFINIL
  10. SYNTHROID [Concomitant]
     Active Substance: LEVOTHYROXINE SODIUM

REACTIONS (12)
  - Cholecystitis [Unknown]
  - White blood cell count increased [Unknown]
  - Monocyte count increased [Unknown]
  - Neutrophil count increased [Unknown]
  - Cytokine increased [Unknown]
  - Hepatic steatosis [Unknown]
  - Weight increased [Unknown]
  - Dyspepsia [Unknown]
  - White blood cell count increased [Unknown]
  - Eosinophilic oesophagitis [Unknown]
  - Eosinophil count increased [Unknown]
  - Drug ineffective [Unknown]

NARRATIVE: CASE EVENT DATE: 20210815
